FAERS Safety Report 7391647-1 (Version None)
Quarter: 2011Q2

REPORT INFORMATION
  Report Type: 
  Country: None (occurrence: None)
  Receive Date: 20110404
  Receipt Date: 20110328
  Transmission Date: 20111010
  Serious: Yes (Death, Disabling)
  Sender: FDA-Public Use
  Company Number: US-EISAI INC-E7389-01157-CLI-US

PATIENT
  Sex: Female

DRUGS (25)
  1. PEMETREXED [Concomitant]
     Indication: NON-SMALL CELL LUNG CANCER
     Route: 041
     Dates: start: 20100813, end: 20110106
  2. ATIVAN [Concomitant]
     Indication: ANXIETY
     Route: 048
     Dates: start: 20090811
  3. CALCIUM [Concomitant]
     Indication: OSTEOPENIA
     Route: 048
     Dates: start: 20050101
  4. METOPROLOL TARTRATE [Concomitant]
     Indication: HYPERTENSION
     Route: 048
     Dates: start: 20090724
  5. IBUPROFEN [Concomitant]
     Route: 048
     Dates: start: 20090903
  6. SIMVASTATIN [Concomitant]
     Indication: HYPERCHOLESTEROLAEMIA
     Route: 048
     Dates: start: 20030101
  7. ALPRAZOLAM [Concomitant]
     Indication: ANXIETY
     Route: 048
     Dates: start: 20100506
  8. DETROL LA [Concomitant]
     Indication: INCONTINENCE
     Route: 048
     Dates: start: 20010101
  9. TESALON PERLES [Concomitant]
     Route: 048
     Dates: start: 20110113
  10. FEXOFENADINE [Concomitant]
     Route: 048
     Dates: start: 20070101
  11. E7389 (BOLD) [Suspect]
     Indication: NON-SMALL CELL LUNG CANCER
     Route: 041
     Dates: start: 20100813, end: 20110106
  12. OMEPRAZOLE [Concomitant]
     Route: 048
     Dates: start: 19890101
  13. FOLIC ACID [Concomitant]
     Route: 048
     Dates: start: 20100805
  14. MULTI-VITAMIN [Concomitant]
     Route: 048
     Dates: start: 20000101
  15. ACETAMINOPHEN [Concomitant]
     Route: 048
     Dates: start: 20100910
  16. FISH OIL [Concomitant]
     Route: 048
     Dates: start: 20000101
  17. TRIAMCINOLONE ACETONIDE [Concomitant]
     Route: 048
     Dates: start: 20090801
  18. DEXAMETHASONE [Concomitant]
     Route: 048
     Dates: start: 20100812
  19. ASCORBIC ACID [Concomitant]
     Route: 048
     Dates: start: 20050101
  20. ASPIRIN [Concomitant]
     Route: 048
     Dates: start: 19990101
  21. VICODIN [Concomitant]
     Indication: PAIN
     Route: 048
     Dates: start: 20090821
  22. VITAMIN D [Concomitant]
     Indication: OSTEOPENIA
     Route: 048
     Dates: start: 20050101
  23. VITAMIN B6 [Concomitant]
     Route: 048
     Dates: start: 20100301
  24. ZOLOFT [Concomitant]
     Indication: DEPRESSION
     Route: 048
     Dates: start: 20100301
  25. FRAGMIN [Concomitant]
     Indication: PULMONARY EMBOLISM
     Route: 058
     Dates: start: 20110121, end: 20110209

REACTIONS (2)
  - CEREBRAL INFARCTION [None]
  - LOSS OF CONSCIOUSNESS [None]
